FAERS Safety Report 4749659-X (Version None)
Quarter: 2005Q3

REPORT INFORMATION
  Report Type: 
  Country: None (occurrence: None)
  Receive Date: 20050822
  Receipt Date: 20050309
  Transmission Date: 20060218
  Serious: Yes (Hospitalization)
  Sender: FDA-Public Use
  Company Number: US-MERCK-0503USA02116

PATIENT
  Age: 57 Year
  Sex: Male
  Weight: 127 kg

DRUGS (7)
  1. VIOXX [Suspect]
     Indication: OSTEOARTHRITIS
     Route: 048
     Dates: start: 19990608, end: 20040325
  2. VIOXX [Suspect]
     Route: 048
     Dates: start: 19990608, end: 20040325
  3. GLUCOVANCE [Concomitant]
     Indication: DIABETES MELLITUS
     Route: 065
  4. CELEBREX [Concomitant]
     Indication: OSTEOARTHRITIS
     Route: 065
  5. NEURONTIN [Concomitant]
     Route: 065
  6. AMBIEN [Concomitant]
     Indication: SLEEP DISORDER
     Route: 065
  7. TYLENOL [Concomitant]
     Route: 065

REACTIONS (14)
  - ACUTE MYOCARDIAL INFARCTION [None]
  - ARTHRITIS INFECTIVE [None]
  - ARTHROPATHY [None]
  - BLOOD CHOLESTEROL INCREASED [None]
  - BLOOD TRIGLYCERIDES INCREASED [None]
  - BURSITIS [None]
  - CARDIOMYOPATHY [None]
  - CHRONIC FATIGUE SYNDROME [None]
  - CORONARY ARTERY DISEASE [None]
  - CORONARY ARTERY STENOSIS [None]
  - DYSPEPSIA [None]
  - POLYTRAUMATISM [None]
  - SPINAL LAMINECTOMY [None]
  - THROMBOSIS [None]
